FAERS Safety Report 19006622 (Version 1)
Quarter: 2021Q1

REPORT INFORMATION
  Report Type: Spontaneous
  Country: US (occurrence: US)
  Receive Date: 20210312
  Receipt Date: 20210312
  Transmission Date: 20210420
  Serious: No
  Sender: FDA-Public Use
  Company Number: None

PATIENT
  Age: 52 Year
  Sex: Female
  Weight: 52.5 kg

DRUGS (2)
  1. GAMUNEX?C [Suspect]
     Active Substance: HUMAN IMMUNOGLOBULIN G
     Indication: MYOSITIS
     Route: 042
  2. GAMUNEX?C [Suspect]
     Active Substance: HUMAN IMMUNOGLOBULIN G
     Indication: MYOSITIS
     Route: 042
     Dates: start: 20210303, end: 20210303

REACTIONS (5)
  - Incorrect dose administered [None]
  - Infusion related reaction [None]
  - Rash [None]
  - Suspected product quality issue [None]
  - Pruritus [None]

NARRATIVE: CASE EVENT DATE: 20210303
